FAERS Safety Report 24186666 (Version 1)
Quarter: 2024Q3

REPORT INFORMATION
  Report Type: Spontaneous
  Country: PT (occurrence: PT)
  Receive Date: 20240808
  Receipt Date: 20240808
  Transmission Date: 20241016
  Serious: Yes (Other)
  Sender: AUROBINDO
  Company Number: PT-INFARMED-B202407-438

PATIENT
  Age: 41 Year
  Sex: Male

DRUGS (2)
  1. MELOXICAM [Suspect]
     Active Substance: MELOXICAM
     Indication: Drug provocation test
     Dosage: ORAL PROVOCATION TEST CARRIED OUT BY IMMUNOALLERGOLOGY
     Route: 048
     Dates: start: 20240711, end: 20240711
  2. ETORICOXIB [Concomitant]
     Active Substance: ETORICOXIB
     Indication: Product used for unknown indication
     Dosage: 1/2 1ST DAY AND 1 CP 2ND DAY WITHOUT HA WITHOUT COMPLICATIONS
     Route: 048

REACTIONS (3)
  - Paraesthesia oral [Recovered/Resolved]
  - Rash papular [Recovered/Resolved]
  - Pruritus [Recovered/Resolved]

NARRATIVE: CASE EVENT DATE: 20240711
